FAERS Safety Report 25146418 (Version 1)
Quarter: 2025Q2

REPORT INFORMATION
  Report Type: Spontaneous
  Country: US (occurrence: US)
  Receive Date: 20250401
  Receipt Date: 20250401
  Transmission Date: 20250716
  Serious: No
  Sender: ABBVIE
  Company Number: US-ABBVIE-6200339

PATIENT
  Age: 21 Year
  Sex: Female
  Weight: 58.966 kg

DRUGS (1)
  1. SKYRIZI [Suspect]
     Active Substance: RISANKIZUMAB-RZAA
     Indication: Psoriasis
     Dosage: FORM STRENGTH: 150 MG, DRUG START DATE: ONE YEAR AND A HALF AGO.
     Route: 058
     Dates: start: 2023

REACTIONS (6)
  - Discomfort [Not Recovered/Not Resolved]
  - Injection site pain [Recovered/Resolved]
  - Device use error [Not Recovered/Not Resolved]
  - Injection site haemorrhage [Recovered/Resolved]
  - Psoriasis [Not Recovered/Not Resolved]
  - Pruritus [Not Recovered/Not Resolved]

NARRATIVE: CASE EVENT DATE: 20250301
